FAERS Safety Report 7571229-9 (Version None)
Quarter: 2011Q2

REPORT INFORMATION
  Report Type: 
  Country: None (occurrence: None)
  Receive Date: 20110624
  Receipt Date: 20110616
  Transmission Date: 20111010
  Serious: Yes (Death, Life-Threatening, Hospitalization, Disabling, Other)
  Sender: FDA-Public Use
  Company Number: A0929137A

PATIENT
  Age: 78 Year
  Sex: Female
  Weight: 55.9 kg

DRUGS (7)
  1. FLONASE [Suspect]
     Dosage: 4SPR PER DAY
     Route: 045
  2. PROTONIX [Concomitant]
     Dosage: 40MG PER DAY
     Route: 048
     Dates: start: 20100710
  3. VENTOLIN HFA [Suspect]
     Dosage: 2PUFF AS REQUIRED
     Route: 055
  4. ADVAIR DISKUS 100/50 [Suspect]
     Dosage: 1PUFF TWICE PER DAY
     Route: 055
  5. SINGULAIR [Concomitant]
     Dosage: 10MG PER DAY
     Route: 048
  6. ARICEPT [Concomitant]
     Dosage: 5MG AT NIGHT
     Route: 048
  7. NEBULIZER TREATMENT [Concomitant]

REACTIONS (5)
  - COAGULOPATHY [None]
  - HAEMORRHAGE [None]
  - CEREBROVASCULAR ACCIDENT [None]
  - SUBDURAL HAEMATOMA [None]
  - PLATELET DISORDER [None]
